FAERS Safety Report 15301325 (Version 1)
Quarter: 2018Q3

REPORT INFORMATION
  Report Type: Spontaneous
  Country: CA (occurrence: CA)
  Receive Date: 20180821
  Receipt Date: 20180821
  Transmission Date: 20181010
  Serious: Yes (Hospitalization)
  Sender: FDA-Public Use
  Company Number: CA-HLSUS-2018-CA-001229

PATIENT
  Age: 47 Year
  Sex: Female
  Weight: 68 kg

DRUGS (17)
  1. CLOZARIL [Suspect]
     Active Substance: CLOZAPINE
     Indication: SCHIZOPHRENIA
     Dosage: 175MG
     Route: 048
  2. SENNOSIDES. [Concomitant]
     Active Substance: SENNOSIDES
  3. TRAZODONE [Concomitant]
     Active Substance: TRAZODONE HYDROCHLORIDE
  4. BETAMETHASONE. [Concomitant]
     Active Substance: BETAMETHASONE
  5. BRONCHOPHAN EXPECTORANT [Concomitant]
  6. CASCARA FLUID EXT [Concomitant]
  7. DOCUSATE SODIUM. [Concomitant]
     Active Substance: DOCUSATE SODIUM
  8. PANTOPRAZOLE [Concomitant]
     Active Substance: PANTOPRAZOLE
  9. ACETAMINOPHEN. [Concomitant]
     Active Substance: ACETAMINOPHEN
  10. LORAZEPAM. [Concomitant]
     Active Substance: LORAZEPAM
  11. ARIPIPRAZOLE. [Concomitant]
     Active Substance: ARIPIPRAZOLE
  12. LIDOCAINE. [Concomitant]
     Active Substance: LIDOCAINE
  13. LACTULOSE SYRUP [Concomitant]
  14. MAGNESIUM HYDROXIDE. [Concomitant]
     Active Substance: MAGNESIUM HYDROXIDE
  15. ZOPICLONE [Concomitant]
     Active Substance: ZOPICLONE
  16. SALBUTAMOL [Concomitant]
     Active Substance: ALBUTEROL
  17. FLUTICASONE. [Concomitant]
     Active Substance: FLUTICASONE

REACTIONS (1)
  - Myoclonic epilepsy [Recovered/Resolved]
